FAERS Safety Report 17354398 (Version 1)
Quarter: 2020Q1

REPORT INFORMATION
  Report Type: Spontaneous
  Country: US (occurrence: US)
  Receive Date: 20200130
  Receipt Date: 20200130
  Transmission Date: 20200409
  Serious: Yes (Hospitalization)
  Sender: FDA-Public Use
  Company Number: None

PATIENT
  Age: 64 Year
  Sex: Female

DRUGS (1)
  1. CAPECITABINE. [Suspect]
     Active Substance: CAPECITABINE
     Indication: RECTAL CANCER
     Route: 048
     Dates: start: 20191102

REACTIONS (5)
  - Therapy cessation [None]
  - Diarrhoea [None]
  - Decreased appetite [None]
  - Pulmonary embolism [None]
  - Asthenia [None]

NARRATIVE: CASE EVENT DATE: 20200117
